FAERS Safety Report 5842699-9 (Version None)
Quarter: 2008Q3

REPORT INFORMATION
  Report Type: 
  Country: None (occurrence: None)
  Receive Date: 20080812
  Receipt Date: 20080804
  Transmission Date: 20090109
  Serious: Yes (Hospitalization, Other)
  Sender: FDA-Public Use
  Company Number: US-AMGEN-QUU197198

PATIENT
  Sex: Female

DRUGS (4)
  1. ENBREL [Suspect]
     Indication: RHEUMATOID ARTHRITIS
     Route: 058
     Dates: start: 19981101
  2. CELLCEPT [Concomitant]
     Route: 048
     Dates: start: 20060829
  3. REMICADE [Concomitant]
  4. HUMIRA [Concomitant]

REACTIONS (10)
  - ANAPHYLACTIC REACTION [None]
  - BONE EROSION [None]
  - CONDITION AGGRAVATED [None]
  - DRUG INEFFECTIVE [None]
  - HAND DEFORMITY [None]
  - JOINT DISLOCATION [None]
  - PLATELET COUNT INCREASED [None]
  - RED BLOOD CELL SEDIMENTATION RATE INCREASED [None]
  - RHEUMATOID ARTHRITIS [None]
  - SWELLING [None]
